FAERS Safety Report 4367739-8 (Version None)
Quarter: 2004Q2

REPORT INFORMATION
  Report Type: 
  Country: None (occurrence: None)
  Receive Date: 20040527
  Receipt Date: 20030610
  Transmission Date: 20050107
  Serious: Yes (Other)
  Sender: FDA-Public Use
  Company Number: 339943

PATIENT
  Age: 15 Year
  Sex: Male

DRUGS (1)
  1. LARIAM [Suspect]
     Dates: start: 20021115

REACTIONS (1)
  - SUICIDAL IDEATION [None]
